FAERS Safety Report 5197594-8 (Version None)
Quarter: 2006Q4

REPORT INFORMATION
  Report Type: 
  Country: None (occurrence: None)
  Receive Date: 20061228
  Receipt Date: 20061218
  Transmission Date: 20070319
  Serious: Yes (Hospitalization)
  Sender: FDA-Public Use
  Company Number: 2006SP008652

PATIENT
  Age: 76 Year
  Sex: Male
  Weight: 75.8 kg

DRUGS (4)
  1. TEMOZOLOMIDE (S-P) (TEMOZOLOMIDE) [Suspect]
     Indication: GLIOBLASTOMA MULTIFORME
     Dosage: 140 MG; QD; PO; SEE IMAGE
     Route: 048
     Dates: start: 20061113, end: 20061204
  2. TEMOZOLOMIDE (S-P) (TEMOZOLOMIDE) [Suspect]
     Indication: GLIOBLASTOMA MULTIFORME
     Dosage: 140 MG; QD; PO; SEE IMAGE
     Route: 048
     Dates: start: 20061211, end: 20061214
  3. DEXAMETHASONE TAB [Suspect]
     Indication: DRUG USE FOR UNKNOWN INDICATION
  4. RADIATION THERAPY [Concomitant]

REACTIONS (4)
  - CONJUNCTIVITIS [None]
  - INFECTION [None]
  - MENINGITIS VIRAL [None]
  - VITREOUS DETACHMENT [None]
